FAERS Safety Report 5933325-9 (Version None)
Quarter: 2008Q4

REPORT INFORMATION
  Report Type: 
  Country: None (occurrence: None)
  Receive Date: 20081028
  Receipt Date: 20081017
  Transmission Date: 20090506
  Serious: Yes (Hospitalization)
  Sender: FDA-Public Use
  Company Number: CN-PFIZER INC-2008087950

PATIENT
  Age: 81 Year
  Sex: Male

DRUGS (1)
  1. AZITHROMYCIN [Suspect]
     Indication: SINUSITIS
     Dosage: DAILY DOSE:500MG
     Route: 048
     Dates: start: 20040226, end: 20040228

REACTIONS (2)
  - CHOLECYSTITIS ACUTE [None]
  - LIVER DISORDER [None]
